FAERS Safety Report 19903712 (Version 1)
Quarter: 2021Q4

REPORT INFORMATION
  Report Type: Spontaneous
  Country: DE (occurrence: DE)
  Receive Date: 20211001
  Receipt Date: 20211001
  Transmission Date: 20220303
  Serious: Yes (Hospitalization)
  Sender: FDA-Public Use
  Company Number: DE-EMA-DD-20210919-BANAVALLI_M-194534

PATIENT
  Age: 50 Year
  Sex: Female
  Weight: 85 kg

DRUGS (7)
  1. FULVESTRANT [Suspect]
     Active Substance: FULVESTRANT
     Indication: Breast cancer
     Dosage: CYCLIC, EVERY 4 WEEKS,LAST ADMINISTERED ON 08-OCT-2020
     Route: 030
     Dates: start: 20200813
  2. IBANDRONIC ACID [Suspect]
     Active Substance: IBANDRONIC ACID
     Indication: Metastases to bone
     Route: 042
     Dates: start: 20200813
  3. PALBOCICLIB [Suspect]
     Active Substance: PALBOCICLIB
     Indication: Breast cancer
     Dosage: DURATION 2 MONTHS 1 DAY, LAST ADMINISTERED ON 14-OCT-2020
     Route: 048
     Dates: start: 20200814, end: 20201014
  4. PANTOPRAZOLE [Concomitant]
     Active Substance: PANTOPRAZOLE
     Indication: Nausea
     Dates: start: 20201006
  5. IBUPROFEN [Concomitant]
     Active Substance: IBUPROFEN
     Indication: Pain
     Dates: start: 2020
  6. paracetamol, acetylsalicyclic acid [Concomitant]
     Indication: Cough
     Dates: start: 20200924
  7. LEVOTHYROXINE SODIUM [Concomitant]
     Active Substance: LEVOTHYROXINE SODIUM
     Indication: Hypothyroidism

REACTIONS (4)
  - Dysphagia [Recovered/Resolved]
  - Interstitial lung disease [Recovered/Resolved]
  - Faecaloma [Recovered/Resolved]
  - Oesophageal stenosis [Recovered/Resolved]

NARRATIVE: CASE EVENT DATE: 20201015
